FAERS Safety Report 6802505-2 (Version None)
Quarter: 2010Q2

REPORT INFORMATION
  Report Type: 
  Country: None (occurrence: None)
  Receive Date: 20100628
  Receipt Date: 20100615
  Transmission Date: 20101027
  Serious: No
  Sender: FDA-Public Use
  Company Number: US-B.I. PHARMACEUTICALS,INC./RIDGEFIELD-2010-BP-06824BP

PATIENT
  Sex: Female

DRUGS (9)
  1. SPIRIVA [Suspect]
     Indication: EMPHYSEMA
     Dosage: 18 MCG
     Route: 055
     Dates: start: 20080601
  2. SPIRIVA [Suspect]
     Indication: LUNG LOBECTOMY
  3. PRISTIQ [Concomitant]
     Indication: DEPRESSION
  4. ADALAT [Concomitant]
     Indication: HYPERTENSION
  5. DYAZIDE [Concomitant]
     Indication: HYPERTENSION
  6. DARVOCET [Concomitant]
     Indication: SPINAL COLUMN STENOSIS
  7. PROTONIX [Concomitant]
     Indication: ABDOMINAL DISCOMFORT
  8. ACTONEL [Concomitant]
     Indication: OSTEOPENIA
  9. VITAMINS [Concomitant]
     Indication: PROPHYLAXIS

REACTIONS (2)
  - BURSITIS [None]
  - URINE ODOUR ABNORMAL [None]
